FAERS Safety Report 12288936 (Version 1)
Quarter: 2016Q2

REPORT INFORMATION
  Report Type: Report from Study
  Country: BR (occurrence: BR)
  Receive Date: 20160421
  Receipt Date: 20160421
  Transmission Date: 20160815
  Serious: Yes (Other)
  Sender: FDA-Public Use
  Company Number: BR-AMGEN-BRACT2011069941

PATIENT
  Age: 60 Year
  Sex: Female
  Weight: 65 kg

DRUGS (8)
  1. ETANERCEPT [Suspect]
     Active Substance: ETANERCEPT
     Indication: RHEUMATOID ARTHRITIS
     Dosage: 50 MG, QWK
     Route: 058
     Dates: start: 201111
  2. METHOTREXATE [Concomitant]
     Active Substance: METHOTREXATE
     Dosage: 4 TABLET, ONCE WEEKLY (STRENGTH 2.5)
  3. METICORTEN [Concomitant]
     Active Substance: PREDNISONE
     Dosage: 10 MG, 2X/DAY (STRENGTH 5 MG AT 4 UNITS)
  4. OMEGA 3                            /01333901/ [Concomitant]
     Active Substance: FISH OIL\TOCOPHEROL
     Dosage: 3 TABLETS 3X/DAY
     Route: 048
  5. OSTEOFIX D3 [Concomitant]
     Dosage: 500 MG, 2X/DAY
  6. ALENDRONATE SODIUM. [Concomitant]
     Active Substance: ALENDRONATE SODIUM
     Dosage: 70 MG, ONCE WEEKLY
  7. METICORTEN [Concomitant]
     Active Substance: PREDNISONE
     Dosage: 10 MG, 2X/DAY
     Route: 048
  8. OMEGA 3                            /01334101/ [Concomitant]
     Active Substance: OMEGA-3 FATTY ACIDS
     Dosage: 3 TABLETS 3X/DAY
     Route: 048

REACTIONS (13)
  - Injection site erythema [Unknown]
  - Cataract [Unknown]
  - Renal function test abnormal [Unknown]
  - Pain [Not Recovered/Not Resolved]
  - Oropharyngeal pain [Unknown]
  - Injection site haemorrhage [Unknown]
  - Hip fracture [Unknown]
  - Injection site pain [Unknown]
  - Sinusitis [Unknown]
  - Fear [Unknown]
  - Pyrexia [Unknown]
  - Liver function test abnormal [Unknown]
  - Fall [Unknown]

NARRATIVE: CASE EVENT DATE: 2011
